FAERS Safety Report 10674609 (Version 1)
Quarter: 2014Q4

REPORT INFORMATION
  Report Type: Spontaneous
  Country: GB (occurrence: GB)
  Receive Date: 20141224
  Receipt Date: 20141224
  Transmission Date: 20150529
  Serious: Yes (Other)
  Sender: FDA-Public Use
  Company Number: GB-WATSON-2014-27212

PATIENT
  Age: 24 Year
  Sex: Male

DRUGS (1)
  1. ATRACURIUM (UNKNOWN) [Suspect]
     Active Substance: ATRACURIUM
     Indication: ANAESTHESIA
     Dosage: 35 MG, UNKNOWN
     Route: 065

REACTIONS (1)
  - Respiratory arrest [Unknown]

NARRATIVE: CASE EVENT DATE: 20140721
